FAERS Safety Report 7321407-9 (Version None)
Quarter: 2011Q1

REPORT INFORMATION
  Report Type: 
  Country: None (occurrence: None)
  Receive Date: 20110228
  Receipt Date: 20100513
  Transmission Date: 20110831
  Serious: No
  Sender: FDA-Public Use
  Company Number: US-PFIZER INC-2010061208

PATIENT
  Sex: Male
  Weight: 108.84 kg

DRUGS (21)
  1. PHENAZOPYRIDINE HCL TAB [Concomitant]
     Dosage: UNK
  2. CALCIUM [Concomitant]
     Dosage: UNK
  3. ACIPHEX [Concomitant]
     Indication: ABDOMINAL DISCOMFORT
     Dosage: UNK
  4. GEODON [Suspect]
     Indication: BIPOLAR DISORDER
     Dosage: 40 MG DAILY
     Dates: start: 20100301
  5. GABAPENTIN [Concomitant]
     Indication: NEUROPATHY PERIPHERAL
     Dosage: UNK
  6. ACETYLSALICYLIC ACID [Concomitant]
     Indication: GROIN PAIN
     Dosage: 81 MG, UNK
  7. ACETYLSALICYLIC ACID [Concomitant]
     Indication: ARTHRALGIA
  8. AMLODIPINE [Concomitant]
     Indication: CARDIOVASCULAR DISORDER
     Dosage: UNK
  9. GEODON [Suspect]
     Dosage: 60 MG, UNK
     Dates: start: 20100301
  10. VITAMIN B-12 [Concomitant]
     Indication: VITAMIN SUPPLEMENTATION
     Dosage: UNK
  11. KLONOPIN [Concomitant]
     Dosage: UNK
  12. ACETAMINOPHEN AND HYDROCODONE BITARTRATE [Concomitant]
     Dosage: UNK
  13. VALSARTAN [Concomitant]
     Indication: HYPERTENSION
     Dosage: UNK
  14. VITAMIN B COMPLEX CAP [Concomitant]
     Indication: VITAMIN SUPPLEMENTATION
     Dosage: UNK
  15. VITAMIN D [Concomitant]
     Dosage: 5000 IU, EVERY FIVE DAYS
  16. PROSCAR [Concomitant]
     Indication: PROSTATOMEGALY
     Dosage: UNK
  17. GEODON [Suspect]
     Dosage: 80 MG, 2X/DAY
     Dates: start: 20100301
  18. PLAVIX [Concomitant]
     Dosage: UNK
  19. ASCORBIC ACID [Concomitant]
     Indication: VITAMIN SUPPLEMENTATION
     Dosage: UNK
  20. CETIRIZINE [Concomitant]
     Indication: HYPERSENSITIVITY
     Dosage: UNK
  21. TAMSULOSIN HYDROCHLORIDE [Concomitant]
     Indication: PROSTATOMEGALY
     Dosage: UNK

REACTIONS (3)
  - INCREASED APPETITE [None]
  - POLLAKIURIA [None]
  - WEIGHT INCREASED [None]
